FAERS Safety Report 8318016-1 (Version None)
Quarter: 2012Q2

REPORT INFORMATION
  Report Type: 
  Country: None (occurrence: None)
  Receive Date: 20120427
  Receipt Date: 20120417
  Transmission Date: 20120825
  Serious: Yes (Life-Threatening, Hospitalization)
  Sender: FDA-Public Use
  Company Number: US-SANOFI-AVENTIS-2012SA015636

PATIENT
  Age: 58 Year
  Sex: Male
  Weight: 121.7 kg

DRUGS (26)
  1. GLIPIZIDE [Concomitant]
     Route: 048
     Dates: start: 20100825
  2. PIOGLITAZONE [Concomitant]
     Route: 048
     Dates: start: 20100521
  3. DOCETAXEL [Suspect]
     Indication: PROSTATE CANCER METASTATIC
     Route: 042
     Dates: start: 20110930, end: 20110930
  4. ROSUVASTATIN [Concomitant]
     Route: 048
     Dates: start: 20080606
  5. FISH OIL [Concomitant]
     Route: 048
  6. BISOPROLOL FUMARATE [Concomitant]
     Route: 048
     Dates: start: 20080606
  7. BIOTIN [Concomitant]
     Route: 048
  8. CHOLECALCIFEROL [Concomitant]
     Route: 048
  9. FOLIC ACID [Concomitant]
     Route: 048
  10. GARLIC [Concomitant]
     Route: 048
  11. DOCETAXEL [Suspect]
     Route: 042
     Dates: start: 20120223, end: 20120223
  12. EZETIMIBE [Concomitant]
     Route: 048
     Dates: start: 20080606
  13. SERTRALINE HYDROCHLORIDE [Concomitant]
     Route: 048
     Dates: start: 20110118
  14. CALCIUM [Concomitant]
     Route: 048
  15. CARBOXYMETHYLCELLULOSE SODIUM [Concomitant]
     Route: 047
     Dates: start: 20101206
  16. ASPIRIN [Concomitant]
     Route: 048
  17. ST MARY'S THISTLE [Concomitant]
     Route: 048
  18. DOXYCYCLINE HYCLATE [Concomitant]
     Route: 048
     Dates: start: 20110819
  19. METFORMIN HCL [Concomitant]
     Route: 048
     Dates: start: 20100521
  20. LISINOPRIL [Concomitant]
     Route: 048
     Dates: start: 20100521
  21. HERBAL PREPARATION [Concomitant]
     Route: 048
  22. PREDNISONE [Suspect]
     Indication: PROSTATE CANCER METASTATIC
     Route: 048
     Dates: start: 20110930, end: 20120305
  23. ACYCLOVIR [Concomitant]
     Route: 048
     Dates: start: 20101020
  24. DORZOLAMIDE [Concomitant]
     Route: 047
     Dates: start: 20101018
  25. HYDROCORTISONE [Concomitant]
     Route: 048
     Dates: start: 20110701
  26. GOSERELIN [Concomitant]
     Route: 058
     Dates: start: 20110924

REACTIONS (1)
  - ENCEPHALOPATHY [None]
